FAERS Safety Report 10872677 (Version 1)
Quarter: 2015Q1

REPORT INFORMATION
  Report Type: Spontaneous
  Country: CH (occurrence: CH)
  Receive Date: 20150227
  Receipt Date: 20150227
  Transmission Date: 20150721
  Serious: Yes (Other)
  Sender: FDA-Public Use
  Company Number: CH-ROCHE-1540557

PATIENT
  Age: 0 Day
  Sex: Male
  Weight: 1.16 kg

DRUGS (6)
  1. RIVOTRIL [Suspect]
     Active Substance: CLONAZEPAM
     Indication: PRODUCT USED FOR UNKNOWN INDICATION
     Route: 064
     Dates: start: 2013
  2. TRACTOCILE [Concomitant]
     Active Substance: ATOSIBAN
     Indication: TOCOLYSIS
     Route: 064
     Dates: start: 20141012, end: 20141013
  3. ADALAT CC [Concomitant]
     Active Substance: NIFEDIPINE
     Indication: TOCOLYSIS
     Route: 064
     Dates: start: 20141014
  4. ZOLOFT [Suspect]
     Active Substance: SERTRALINE HYDROCHLORIDE
     Indication: PRODUCT USED FOR UNKNOWN INDICATION
     Route: 064
  5. SOMNIUM (SWITZERLAND) [Suspect]
     Active Substance: DIPHENHYDRAMINE\LORAZEPAM
     Indication: PRODUCT USED FOR UNKNOWN INDICATION
     Dosage: LORAZEPAM 1 MG, DIPHENHYDRAMINE 25 MG
     Route: 064
  6. TRITTICO [Suspect]
     Active Substance: TRAZODONE HYDROCHLORIDE
     Indication: PRODUCT USED FOR UNKNOWN INDICATION
     Route: 064

REACTIONS (8)
  - Premature baby [Unknown]
  - Neonatal respiratory distress syndrome [Recovered/Resolved]
  - Anaemia neonatal [Recovered/Resolved]
  - Candida infection [Recovered/Resolved]
  - Foetal exposure during pregnancy [Unknown]
  - Hyperbilirubinaemia neonatal [Recovered/Resolved]
  - Cerebral haemorrhage neonatal [Recovered/Resolved]
  - Apnoea neonatal [Recovered/Resolved]

NARRATIVE: CASE EVENT DATE: 20141022
